FAERS Safety Report 21814063 (Version 1)
Quarter: 2023Q1

REPORT INFORMATION
  Report Type: Spontaneous
  Country: FR (occurrence: FR)
  Receive Date: 20230104
  Receipt Date: 20230104
  Transmission Date: 20230418
  Serious: Yes (Hospitalization)
  Sender: FDA-Public Use
  Company Number: FR-AFSSAPS-TS20222570

PATIENT
  Age: 65 Year
  Sex: Female

DRUGS (4)
  1. BISOPROLOL [Suspect]
     Active Substance: BISOPROLOL
     Indication: Myocardial infarction
     Dosage: 2.5 MILLIGRAM, DAILY
     Route: 048
     Dates: start: 202209
  2. ATORVASTATIN [Suspect]
     Active Substance: ATORVASTATIN
     Indication: Myocardial infarction
     Dosage: 80 MILLIGRAM
     Route: 048
     Dates: start: 202209, end: 20221129
  3. ESIDREX [Suspect]
     Active Substance: HYDROCHLOROTHIAZIDE
     Indication: Myocardial infarction
     Dosage: 25 MILLIGRAM, DAILY
     Route: 048
     Dates: start: 202209
  4. PLAVIX [Suspect]
     Active Substance: CLOPIDOGREL BISULFATE
     Indication: Myocardial infarction
     Dosage: 75 MILLIGRAM
     Route: 048
     Dates: start: 202209

REACTIONS (3)
  - Hepatic cytolysis [Not Recovered/Not Resolved]
  - Blood creatine phosphokinase increased [Not Recovered/Not Resolved]
  - Myalgia [Not Recovered/Not Resolved]

NARRATIVE: CASE EVENT DATE: 20221101
